FAERS Safety Report 4264292-4 (Version None)
Quarter: 2004Q1

REPORT INFORMATION
  Report Type: 
  Country: None (occurrence: None)
  Receive Date: 20040102
  Receipt Date: 20031205
  Transmission Date: 20041129
  Serious: No
  Sender: FDA-Public Use
  Company Number: 200313530BCC

PATIENT
  Age: 54 Year
  Sex: Female
  Weight: 56.6996 kg

DRUGS (3)
  1. ALEVE [Suspect]
     Indication: CYSTITIS
     Dosage: SEE IMAGE
     Route: 048
     Dates: end: 20030926
  2. ALEVE [Suspect]
     Indication: CYSTITIS
     Dosage: SEE IMAGE
     Route: 048
     Dates: start: 20030901
  3. ZANTAC [Concomitant]

REACTIONS (4)
  - ANXIETY [None]
  - MUSCLE SPASMS [None]
  - RENAL PAIN [None]
  - URINARY TRACT INFECTION [None]
